FAERS Safety Report 8921519 (Version 4)
Quarter: 2013Q2

REPORT INFORMATION
  Report Type: Spontaneous
  Country: US (occurrence: US)
  Receive Date: 20121122
  Receipt Date: 20130605
  Transmission Date: 20140414
  Serious: Yes (Hospitalization)
  Sender: FDA-Public Use
  Company Number: US-BIOGENIDEC-2012BI054534

PATIENT
  Age: 42 Year
  Sex: Female

DRUGS (3)
  1. AVONEX [Suspect]
     Indication: MULTIPLE SCLEROSIS
     Route: 030
     Dates: start: 20020620, end: 20050620
  2. AVONEX [Suspect]
     Indication: MULTIPLE SCLEROSIS
     Route: 030
     Dates: start: 20080604
  3. AVONEX [Suspect]
     Indication: MULTIPLE SCLEROSIS
     Route: 030
     Dates: start: 20101118

REACTIONS (4)
  - Diverticulum [Recovered/Resolved]
  - Iatrogenic injury [Recovered/Resolved]
  - Intestinal stent insertion [Recovered/Resolved]
  - Ureteritis [Not Recovered/Not Resolved]
